FAERS Safety Report 13744521 (Version 4)
Quarter: 2022Q1

REPORT INFORMATION
  Report Type: Spontaneous
  Country: FI (occurrence: FI)
  Receive Date: 20170712
  Receipt Date: 20220126
  Transmission Date: 20220423
  Serious: Yes (Other)
  Sender: FDA-Public Use
  Company Number: FI-ROCHE-1960164

PATIENT
  Age: 71 Year
  Sex: Female

DRUGS (3)
  1. BEVACIZUMAB [Suspect]
     Active Substance: BEVACIZUMAB
     Indication: Malignant peritoneal neoplasm
     Route: 042
     Dates: start: 20170503, end: 20170601
  2. CARBOPLATIN [Concomitant]
     Active Substance: CARBOPLATIN
  3. PACLITAXEL [Concomitant]
     Active Substance: PACLITAXEL

REACTIONS (3)
  - Ophthalmic vein thrombosis [Unknown]
  - Ophthalmic vein thrombosis [Unknown]
  - Macular oedema [Unknown]

NARRATIVE: CASE EVENT DATE: 20170601
